FAERS Safety Report 7327947-0 (Version None)
Quarter: 2011Q1

REPORT INFORMATION
  Report Type: 
  Country: None (occurrence: None)
  Receive Date: 20110303
  Receipt Date: 20110225
  Transmission Date: 20110831
  Serious: Yes (Other)
  Sender: FDA-Public Use
  Company Number: GB-B.I. PHARMACEUTICALS,INC./RIDGEFIELD-2011-UK-00192UK

PATIENT
  Age: 6 Year
  Sex: Male

DRUGS (1)
  1. DIPYRIDAMOLE [Suspect]
     Dosage: 400 MG

REACTIONS (4)
  - MEDICATION ERROR [None]
  - NAUSEA [None]
  - EPISTAXIS [None]
  - VOMITING [None]
